FAERS Safety Report 24140288 (Version 2)
Quarter: 2024Q4

REPORT INFORMATION
  Report Type: Spontaneous
  Country: JP (occurrence: JP)
  Receive Date: 20240726
  Receipt Date: 20241111
  Transmission Date: 20250114
  Serious: Yes (Hospitalization, Other)
  Sender: LEO PHARM
  Company Number: JP-LEO Pharma-372238

PATIENT
  Age: 74 Year
  Sex: Female
  Weight: 48 kg

DRUGS (9)
  1. ADBRY [Suspect]
     Active Substance: TRALOKINUMAB-LDRM
     Indication: Dermatitis atopic
     Dosage: ADMINISTRATION SITES: ABDOMEN ADMINISTERED BY PHYSICIAN INJECTION 150 MG SYRINGE
     Route: 058
     Dates: start: 20240508
  2. ADBRY [Suspect]
     Active Substance: TRALOKINUMAB-LDRM
     Indication: Dermatitis atopic
     Dosage: ADMINISTRATION SITES: ABDOMEN ADMINISTERED BY PHYSICIAN INJECTION 150 MG SYRINGE
     Route: 058
     Dates: start: 20240522
  3. ADBRY [Suspect]
     Active Substance: TRALOKINUMAB-LDRM
     Indication: Dermatitis atopic
     Dosage: ADMINISTRATION SITES: ABDOMEN ADMINISTERED BY PHYSICIAN INJECTION 150 MG SYRINGE
     Route: 058
     Dates: start: 20240605
  4. ADBRY [Suspect]
     Active Substance: TRALOKINUMAB-LDRM
     Indication: Dermatitis atopic
     Dosage: ADMINISTRATION SITES: ABDOMEN ADMINISTERED BY PHYSICIAN INJECTION 150 MG SYRINGE
     Route: 058
     Dates: start: 20240618
  5. LOCOID [Concomitant]
     Active Substance: HYDROCORTISONE BUTYRATE
     Indication: Dermatitis atopic
     Dosage: APPROPRIATE AMOUNT 2 TIMES PER DAY (.5 DAYS)
     Route: 003
     Dates: start: 20240726
  6. Rinderon [Concomitant]
     Indication: Dermatitis atopic
     Route: 048
     Dates: start: 20231004, end: 20240605
  7. DELGOCITINIB [Concomitant]
     Active Substance: DELGOCITINIB
     Indication: Dermatitis atopic
     Dosage: APPROPRIATE AMOUNT 2 TIMES PER DAY (.5 DAYS)
     Route: 003
     Dates: start: 20231115
  8. BETAMETHASONE DIPROPIONATE [Concomitant]
     Active Substance: BETAMETHASONE DIPROPIONATE
     Indication: Dermatitis atopic
     Dosage: APPROPRIATE AMOUNT 2 TIMES PER DAY (.5 DAYS)
     Route: 003
     Dates: start: 20240621
  9. BETAMETHASONE DIPROPIONATE [Concomitant]
     Active Substance: BETAMETHASONE DIPROPIONATE
     Indication: Dermatitis atopic
     Dosage: APPROPRIATE AMOUNT 2 TIMES PER DAY (.5 DAYS)
     Route: 003
     Dates: start: 20230913

REACTIONS (1)
  - Cutaneous T-cell lymphoma [Not Recovered/Not Resolved]

NARRATIVE: CASE EVENT DATE: 20240626
